FAERS Safety Report 4480446-6 (Version None)
Quarter: 2004Q4

REPORT INFORMATION
  Report Type: 
  Country: None (occurrence: None)
  Receive Date: 20041018
  Receipt Date: 20040930
  Transmission Date: 20050328
  Serious: Yes (Death)
  Sender: FDA-Public Use
  Company Number: DSA_25105_2004

PATIENT
  Age: 35 Year
  Sex: 0

DRUGS (3)
  1. LORAZEPAM [Suspect]
     Dosage: DF PO
     Route: 048
  2. CHLORAL HYDRATE [Suspect]
     Dosage: DF PO
     Route: 048
  3. METHADONE HCL [Suspect]
     Dosage: DF PO
     Route: 048

REACTIONS (3)
  - CARDIAC ARREST [None]
  - MULTIPLE DRUG OVERDOSE [None]
  - RESPIRATORY ARREST [None]
